FAERS Safety Report 21622053 (Version 6)
Quarter: 2023Q4

REPORT INFORMATION
  Report Type: Report from Study
  Country: CA (occurrence: CA)
  Receive Date: 20221121
  Receipt Date: 20231224
  Transmission Date: 20240110
  Serious: Yes (Other)
  Sender: FDA-Public Use
  Company Number: CA-MYLANLABS-2022M1128166

PATIENT

DRUGS (3)
  1. HULIO [Suspect]
     Active Substance: ADALIMUMAB-FKJP
     Indication: Ankylosing spondylitis
     Dosage: 40 MILLIGRAM, Q3W
     Route: 058
     Dates: start: 20220201
  2. HULIO [Suspect]
     Active Substance: ADALIMUMAB-FKJP
     Dosage: UNK UNK, BIWEEKLY
     Route: 058
     Dates: start: 20220201
  3. HULIO [Suspect]
     Active Substance: ADALIMUMAB-FKJP
     Dosage: 40 MILLIGRAM, BIWEEKLY
     Route: 058
     Dates: start: 20220201

REACTIONS (10)
  - Pain [Unknown]
  - Rash [Unknown]
  - Musculoskeletal stiffness [Unknown]
  - Carpal tunnel syndrome [Unknown]
  - Hypoaesthesia [Unknown]
  - Paraesthesia [Unknown]
  - Pain in extremity [Unknown]
  - Off label use [Unknown]
  - Therapy interrupted [Unknown]
  - Product dose omission issue [Unknown]
